FAERS Safety Report 21735091 (Version 1)
Quarter: 2022Q4

REPORT INFORMATION
  Report Type: Spontaneous
  Country: US (occurrence: US)
  Receive Date: 20221215
  Receipt Date: 20221215
  Transmission Date: 20230112
  Serious: Yes (Other)
  Sender: FDA-Public Use
  Company Number: US-ABBVIE-4232901

PATIENT
  Sex: Male

DRUGS (5)
  1. HUMIRA [Suspect]
     Active Substance: ADALIMUMAB
     Indication: Crohn^s disease
     Dosage: FORM STRENGTH 40 MILLIGRAM
     Route: 058
     Dates: start: 2019, end: 20221203
  2. XANAX [Concomitant]
     Active Substance: ALPRAZOLAM
     Indication: Sleep disorder
  3. PREDNISONE [Concomitant]
     Active Substance: PREDNISONE
     Indication: Rectal haemorrhage
     Route: 042
     Dates: start: 20220928, end: 20220928
  4. OMEPRAZOLE [Concomitant]
     Active Substance: OMEPRAZOLE
     Indication: Gastric pH decreased
  5. PAXIL [Concomitant]
     Active Substance: PAROXETINE HYDROCHLORIDE
     Indication: Product used for unknown indication

REACTIONS (5)
  - Rectal ulcer haemorrhage [Recovered/Resolved]
  - Intestinal ulcer [Not Recovered/Not Resolved]
  - Blood iron decreased [Not Recovered/Not Resolved]
  - Intestinal stenosis [Not Recovered/Not Resolved]
  - Fatigue [Recovered/Resolved]

NARRATIVE: CASE EVENT DATE: 20220101
